FAERS Safety Report 4298036-7 (Version None)
Quarter: 2004Q1

REPORT INFORMATION
  Report Type: 
  Country: None (occurrence: None)
  Receive Date: 20040218
  Receipt Date: 20011002
  Transmission Date: 20041129
  Serious: Yes (Other)
  Sender: FDA-Public Use
  Company Number: US-BRISTOL-MYERS SQUIBB COMPANY-11539178

PATIENT
  Age: 35 Year
  Sex: Female

DRUGS (9)
  1. STADOL [Suspect]
     Indication: HEADACHE
     Route: 045
     Dates: start: 19950106
  2. CHLORZOXAZONE [Concomitant]
  3. IBUPROFEN [Concomitant]
  4. CEFTIN [Concomitant]
  5. KLONOPIN [Concomitant]
  6. EFFEXOR [Concomitant]
  7. ULTRAM [Concomitant]
  8. HYDROCODONE + ACETAMINOPHEN [Concomitant]
  9. PHENERGAN [Concomitant]

REACTIONS (1)
  - DEPENDENCE [None]
